FAERS Safety Report 4390443-7 (Version None)
Quarter: 2004Q2

REPORT INFORMATION
  Report Type: 
  Country: None (occurrence: None)
  Receive Date: 20040630
  Receipt Date: 20040617
  Transmission Date: 20050107
  Serious: Yes (Death)
  Sender: FDA-Public Use
  Company Number: US-JNJFOC-20040604600

PATIENT
  Age: 30 Year
  Sex: Female

DRUGS (3)
  1. ORTHO EVRA [Suspect]
     Indication: CONTRACEPTION
     Dosage: 1 DOSE (S), 3 IN 4 WEEK, TRANSDERMAL
     Route: 062
     Dates: start: 20030101
  2. COREG [Concomitant]
  3. HYDROCHLOROTHIAZIDE [Concomitant]

REACTIONS (6)
  - BREAST COSMETIC SURGERY [None]
  - DRUG EXPOSURE DURING PREGNANCY [None]
  - HYPOTENSION [None]
  - MEDICATION ERROR [None]
  - PREGNANCY [None]
  - PULMONARY EMBOLISM [None]
